FAERS Safety Report 23705106 (Version 1)
Quarter: 2024Q2

REPORT INFORMATION
  Report Type: Spontaneous
  Country: JP (occurrence: JP)
  Receive Date: 20240404
  Receipt Date: 20240404
  Transmission Date: 20240716
  Serious: Yes (Hospitalization, Other)
  Sender: FDA-Public Use
  Company Number: JP-AMNEAL PHARMACEUTICALS-2024-AMRX-01036

PATIENT
  Age: 79 Year
  Sex: Female
  Weight: 42.1 kg

DRUGS (2)
  1. DOXORUBICIN HYDROCHLORIDE [Suspect]
     Active Substance: DOXORUBICIN HYDROCHLORIDE
     Indication: Adenocarcinoma
     Dosage: SIX CYCLES OF INDUCTION THERAPY
     Route: 065
  2. DOXORUBICIN HYDROCHLORIDE [Suspect]
     Active Substance: DOXORUBICIN HYDROCHLORIDE
     Dosage: 1447 MG/M2 OVER 36 CYCLE
     Route: 065

REACTIONS (2)
  - Thrombotic microangiopathy [Unknown]
  - Proteinuria [Not Recovered/Not Resolved]
